FAERS Safety Report 10784817 (Version 1)
Quarter: 2015Q1

REPORT INFORMATION
  Report Type: Spontaneous
  Country: US (occurrence: US)
  Receive Date: 20150211
  Receipt Date: 20150211
  Transmission Date: 20150721
  Serious: No
  Sender: FDA-Public Use
  Company Number: US-GLAXOSMITHKLINE-A1088636A

PATIENT

DRUGS (1)
  1. LAMICTAL [Suspect]
     Active Substance: LAMOTRIGINE
     Indication: PRODUCT USED FOR UNKNOWN INDICATION
     Route: 065
     Dates: end: 20140908

REACTIONS (6)
  - Eye swelling [Unknown]
  - Swelling face [Unknown]
  - Gingival discolouration [Unknown]
  - Oropharyngeal pain [Unknown]
  - Skin oedema [Unknown]
  - Yellow skin [Unknown]

NARRATIVE: CASE EVENT DATE: 20140906
